FAERS Safety Report 10365485 (Version 1)
Quarter: 2014Q3

REPORT INFORMATION
  Report Type: Spontaneous
  Country: US (occurrence: None)
  Receive Date: 20140805
  Receipt Date: 20140805
  Transmission Date: 20150326
  Serious: Yes (Hospitalization)
  Sender: FDA-Public Use
  Company Number: None

PATIENT
  Age: 53 Year
  Sex: Female

DRUGS (1)
  1. VALIUM [Suspect]
     Active Substance: DIAZEPAM

REACTIONS (3)
  - Oxygen saturation decreased [None]
  - Unresponsive to stimuli [None]
  - Respiratory disorder [None]

NARRATIVE: CASE EVENT DATE: 20140710
